FAERS Safety Report 14657876 (Version 2)
Quarter: 2018Q4

REPORT INFORMATION
  Report Type: Spontaneous
  Country: US (occurrence: US)
  Receive Date: 20180320
  Receipt Date: 20181005
  Transmission Date: 20190204
  Serious: No
  Sender: FDA-Public Use
  Company Number: US-BIOGEN-2017BI00450377

PATIENT
  Sex: Male

DRUGS (2)
  1. AVONEX [Suspect]
     Active Substance: INTERFERON BETA-1A
     Route: 030
  2. AVONEX [Suspect]
     Active Substance: INTERFERON BETA-1A
     Indication: MULTIPLE SCLEROSIS
     Route: 030

REACTIONS (2)
  - Influenza like illness [Not Recovered/Not Resolved]
  - Inappropriate schedule of product administration [Not Recovered/Not Resolved]
